FAERS Safety Report 7771696-1 (Version None)
Quarter: 2011Q3

REPORT INFORMATION
  Report Type: 
  Country: None (occurrence: None)
  Receive Date: 20110922
  Receipt Date: 20100827
  Transmission Date: 20111222
  Serious: Yes (Other)
  Sender: FDA-Public Use
  Company Number: US-ASTRAZENECA-2010SE35508

PATIENT
  Age: 62 Year
  Sex: Female
  Weight: 76.2 kg

DRUGS (21)
  1. SEROQUEL [Suspect]
     Route: 048
  2. LITHIUM [Concomitant]
  3. TRICOR [Concomitant]
  4. SEROQUEL [Suspect]
     Indication: BIPOLAR DISORDER
     Route: 048
     Dates: start: 20090301, end: 20090722
  5. PREVACID [Concomitant]
  6. RISPERDAL [Concomitant]
     Indication: AFFECTIVE DISORDER
     Dosage: 0.25 MG TO 1.5 MG DAILY
     Route: 048
     Dates: start: 20060523, end: 20080119
  7. SEROQUEL [Suspect]
     Route: 048
     Dates: start: 20100301
  8. NEURONTIN [Concomitant]
  9. SEROQUEL [Suspect]
     Indication: AFFECTIVE DISORDER
     Route: 048
     Dates: start: 20090301, end: 20090722
  10. XANAX [Concomitant]
  11. AMBIEN [Concomitant]
  12. LEVOTHYROXINE SODIUM [Concomitant]
  13. FISH OIL [Concomitant]
  14. FIORICET [Concomitant]
  15. SEROQUEL [Suspect]
     Route: 048
     Dates: start: 20100301
  16. SEROQUEL [Suspect]
     Route: 048
  17. HYOMAX [Concomitant]
  18. AXID [Concomitant]
  19. VYCODIN [Concomitant]
  20. ABILIFY [Concomitant]
     Indication: AFFECTIVE DISORDER
     Dosage: 5 MG TO 15 MG DAILY
     Route: 048
     Dates: start: 20090120, end: 20090630
  21. ZYPREXA [Concomitant]
     Indication: AFFECTIVE DISORDER
     Route: 048
     Dates: start: 20040818

REACTIONS (4)
  - DYSKINESIA [None]
  - TARDIVE DYSKINESIA [None]
  - HALLUCINATION, AUDITORY [None]
  - SEDATION [None]
